FAERS Safety Report 4693635-2 (Version None)
Quarter: 2005Q2

REPORT INFORMATION
  Report Type: 
  Country: None (occurrence: None)
  Receive Date: 20050615
  Receipt Date: 20050603
  Transmission Date: 20051028
  Serious: Yes (Other)
  Sender: FDA-Public Use
  Company Number: 2005084743

PATIENT
  Age: 74 Year
  Sex: Male
  Weight: 74.8435 kg

DRUGS (7)
  1. LIPITOR [Suspect]
     Indication: BLOOD CHOLESTEROL INCREASED
     Dosage: 20 MG (20 MG, 1 IN 1 D) ORAL
     Route: 048
  2. ATENOLOL [Concomitant]
  3. PLAVIX [Concomitant]
  4. ACETYLSALICYLIC ACID SRT [Concomitant]
  5. ASCORBIC ACID [Concomitant]
  6. VITAMIN E [Concomitant]
  7. VITAMIN D [Concomitant]

REACTIONS (3)
  - CATARACT [None]
  - DIZZINESS [None]
  - EYE ROLLING [None]
